FAERS Safety Report 8271249 (Version 4)
Quarter: 2013Q1

REPORT INFORMATION
  Report Type: Spontaneous
  Country: US (occurrence: US)
  Receive Date: 20111201
  Receipt Date: 20130325
  Transmission Date: 20140127
  Serious: Yes (Hospitalization)
  Sender: FDA-Public Use
  Company Number: US-JNJFOC-20111108942

PATIENT
  Age: 51 Year
  Sex: Male
  Weight: 81.65 kg

DRUGS (4)
  1. REMICADE [Suspect]
     Indication: PSORIATIC ARTHROPATHY
     Dosage: MAR OR APR-2012
     Route: 042
     Dates: start: 2012
  2. REMICADE [Suspect]
     Indication: PSORIATIC ARTHROPATHY
     Dosage: JUN OR JUL-2005
     Route: 042
     Dates: start: 2005, end: 20111031
  3. FOLIC ACID [Concomitant]
     Indication: PSORIATIC ARTHROPATHY
     Route: 065
  4. METHOTREXATE [Concomitant]
     Indication: PSORIATIC ARTHROPATHY
     Route: 065

REACTIONS (1)
  - Myocardial infarction [Recovered/Resolved]
